FAERS Safety Report 15360985 (Version 1)
Quarter: 2018Q3

REPORT INFORMATION
  Report Type: Spontaneous
  Country: US (occurrence: US)
  Receive Date: 20180907
  Receipt Date: 20180907
  Transmission Date: 20181010
  Serious: No
  Sender: FDA-Public Use
  Company Number: US-SA-2018SA247258

PATIENT
  Age: 78 Year
  Sex: Male

DRUGS (1)
  1. ZANTAC [Suspect]
     Active Substance: RANITIDINE HYDROCHLORIDE
     Indication: DYSPEPSIA
     Dosage: 150 MG, QD AT NIGHT

REACTIONS (6)
  - Throat irritation [Unknown]
  - Sinus disorder [Unknown]
  - Flatulence [Unknown]
  - Musculoskeletal discomfort [Unknown]
  - Contusion [Unknown]
  - Fall [Unknown]
